FAERS Safety Report 23702322 (Version 3)
Quarter: 2025Q2

REPORT INFORMATION
  Report Type: Report from Study
  Country: CA (occurrence: CA)
  Receive Date: 20240403
  Receipt Date: 20250620
  Transmission Date: 20250716
  Serious: Yes (Life-Threatening, Hospitalization, Other)
  Sender: SAMSUNG BIOEPIS
  Company Number: CA-SAMSUNG BIOEPIS-SB-2024-06194

PATIENT
  Age: 39 Year
  Sex: Female
  Weight: 115 kg

DRUGS (5)
  1. RENFLEXIS [Suspect]
     Active Substance: INFLIXIMAB-ABDA
     Indication: Crohn^s disease
     Route: 042
     Dates: start: 20230705
  2. RENFLEXIS [Suspect]
     Active Substance: INFLIXIMAB-ABDA
     Route: 042
     Dates: start: 20240123
  3. RENFLEXIS [Suspect]
     Active Substance: INFLIXIMAB-ABDA
     Route: 042
     Dates: start: 20230705
  4. RENFLEXIS [Suspect]
     Active Substance: INFLIXIMAB-ABDA
     Route: 042
     Dates: start: 20230705
  5. RENFLEXIS [Suspect]
     Active Substance: INFLIXIMAB-ABDA
     Route: 042
     Dates: start: 20230705

REACTIONS (12)
  - Anaphylactic reaction [Recovered/Resolved]
  - Haematemesis [Unknown]
  - Pneumonia [Recovering/Resolving]
  - Infection [Recovering/Resolving]
  - Pyrexia [Recovered/Resolved]
  - Heart rate increased [Unknown]
  - Crohn^s disease [Unknown]
  - Large intestine polyp [Unknown]
  - Oesophageal irritation [Unknown]
  - Fungal infection [Unknown]
  - Cough [Recovering/Resolving]
  - Off label use [Unknown]

NARRATIVE: CASE EVENT DATE: 20240216
